FAERS Safety Report 8814486 (Version 4)
Quarter: 2012Q4

REPORT INFORMATION
  Report Type: 
  Country: JP (occurrence: JP)
  Receive Date: 20120928
  Receipt Date: 20121126
  Transmission Date: 20130627
  Serious: Yes (Hospitalization, Other)
  Sender: FDA-Public Use
  Company Number: JP-JNJFOC-20120910224

PATIENT
  Age: 80 Year
  Sex: Male
  Weight: 60 kg

DRUGS (17)
  1. KENTON [Concomitant]
     Route: 048
     Dates: end: 20120918
  2. MAGNESIUM OXIDE [Concomitant]
     Route: 048
  3. PROSULTIAMINE [Concomitant]
     Indication: PAIN
     Route: 048
     Dates: end: 20120918
  4. MECOBALAMIN [Concomitant]
     Indication: PAIN
     Route: 048
     Dates: end: 20120918
  5. SEFTAC [Concomitant]
     Route: 048
     Dates: end: 20120918
  6. ADETPHOS [Concomitant]
     Indication: PAIN
     Route: 048
     Dates: end: 20120918
  7. ALPROSTADIL [Concomitant]
     Route: 030
     Dates: end: 20120907
  8. METHISTA [Concomitant]
     Route: 048
     Dates: end: 20120918
  9. DIHYDROCODEINE [Concomitant]
     Route: 048
     Dates: end: 20120918
  10. TRAMCET [Suspect]
     Indication: PAIN
     Dosage: 1 dose 1 per day
     Route: 048
     Dates: start: 20120904, end: 20120906
  11. EXFORGE [Concomitant]
     Indication: HYPERTENSION
     Route: 048
     Dates: end: 20120923
  12. PARIET [Concomitant]
     Indication: GASTROOESOPHAGEAL REFLUX DISEASE
     Route: 048
  13. DOMPERIDONE [Concomitant]
     Route: 048
     Dates: end: 20120918
  14. MAIBASTAN [Concomitant]
     Indication: HYPERLIPIDAEMIA
     Route: 048
     Dates: end: 20120925
  15. LORCAM [Concomitant]
     Indication: PAIN
     Route: 048
  16. OPALMON [Concomitant]
     Indication: PAIN
     Route: 048
  17. NEUROTROPIN [Concomitant]
     Indication: PAIN
     Route: 048

REACTIONS (6)
  - Interstitial lung disease [Recovering/Resolving]
  - Loss of consciousness [Recovered/Resolved]
  - Dizziness [Recovered/Resolved]
  - Alveolitis allergic [Unknown]
  - Nausea [Unknown]
  - Alanine aminotransferase increased [Unknown]
